FAERS Safety Report 12506324 (Version 2)
Quarter: 2017Q1

REPORT INFORMATION
  Report Type: Report from Study
  Country: None (occurrence: BR)
  Receive Date: 20160628
  Receipt Date: 20170206
  Transmission Date: 20170428
  Serious: Yes (Other)
  Sender: FDA-Public Use
  Company Number: BR-ABBVIE-16P-020-1663116-00

PATIENT
  Age: 54 Year
  Sex: Female
  Weight: 80 kg

DRUGS (5)
  1. RIVOTRIL [Concomitant]
     Active Substance: CLONAZEPAM
     Indication: CONFUSIONAL STATE
     Dosage: ONCE A DAY
  2. LOSARTANA POTASSICA [Concomitant]
     Active Substance: LOSARTAN
     Indication: BLOOD PRESSURE ABNORMAL
  3. DIVELOL [Concomitant]
     Indication: CARDIAC FAILURE
     Dates: start: 2002
  4. SYNTHROID [Suspect]
     Active Substance: LEVOTHYROXINE SODIUM
     Indication: HYPOTHYROIDISM
     Dosage: DAILY DOSE: 1 TABLET; FASTING
     Route: 048
     Dates: start: 19960101
  5. MAREVAN [Concomitant]
     Active Substance: WARFARIN SODIUM
     Indication: THROMBOSIS PROPHYLAXIS
     Dosage: ONCE A DAY
     Dates: start: 2002

REACTIONS (2)
  - Gout [Recovered/Resolved]
  - Mitral valve replacement [Recovered/Resolved]

NARRATIVE: CASE EVENT DATE: 20020808
